FAERS Safety Report 5776945-7 (Version None)
Quarter: 2008Q2

REPORT INFORMATION
  Report Type: 
  Country: None (occurrence: None)
  Receive Date: 20080618
  Receipt Date: 20080610
  Transmission Date: 20081010
  Serious: Yes (Death, Hospitalization)
  Sender: FDA-Public Use
  Company Number: B0525294A

PATIENT
  Age: 55 Year
  Sex: Male

DRUGS (1)
  1. VENTOLIN [Suspect]
     Indication: ASTHMA
     Dosage: 100MCG SINGLE DOSE
     Route: 055
     Dates: start: 20080607, end: 20080607

REACTIONS (2)
  - DEATH [None]
  - LOSS OF CONSCIOUSNESS [None]
